FAERS Safety Report 6311830-3 (Version None)
Quarter: 2009Q3

REPORT INFORMATION
  Report Type: 
  Country: None (occurrence: None)
  Receive Date: 20090817
  Receipt Date: 20090806
  Transmission Date: 20100115
  Serious: Yes (Other)
  Sender: FDA-Public Use
  Company Number: KR-JNJFOC-20081102212

PATIENT
  Age: 6 Decade
  Sex: Male

DRUGS (6)
  1. ULTRACET [Suspect]
     Route: 048
  2. ULTRACET [Suspect]
     Route: 048
  3. ULTRACET [Suspect]
     Route: 048
  4. ULTRACET [Suspect]
     Route: 048
  5. ULTRACET [Suspect]
     Indication: INTERVERTEBRAL DISC DISORDER
     Route: 048
  6. HYPERTENSION MEDICATION [Concomitant]
     Route: 065

REACTIONS (8)
  - ABDOMINAL DISCOMFORT [None]
  - ANXIETY [None]
  - CONVULSION [None]
  - DEPRESSION [None]
  - FATIGUE [None]
  - INTENTIONAL DRUG MISUSE [None]
  - SENSORY DISTURBANCE [None]
  - WITHDRAWAL SYNDROME [None]
